FAERS Safety Report 10370378 (Version 5)
Quarter: 2014Q4

REPORT INFORMATION
  Report Type: Report from Study
  Country: BR (occurrence: BR)
  Receive Date: 20140808
  Receipt Date: 20141030
  Transmission Date: 20150528
  Serious: Yes (Other)
  Sender: FDA-Public Use
  Company Number: BR-ROCHE-1446161

PATIENT
  Age: 42 Year
  Sex: Female
  Weight: 60 kg

DRUGS (8)
  1. PARACETAMOL [Concomitant]
     Active Substance: ACETAMINOPHEN
     Indication: PAIN
     Dosage: WHEN REQUIRED FOR PAIN
     Route: 048
     Dates: end: 20140801
  2. VENALOT (BRAZIL) [Concomitant]
     Route: 048
  3. TANDRILAX [Concomitant]
     Indication: PAIN
     Route: 048
     Dates: end: 20140801
  4. SIBUTRAMINE [Concomitant]
     Active Substance: SIBUTRAMINE
  5. DEXCHLORPHENIRAMINE MALEATE. [Concomitant]
     Active Substance: DEXCHLORPHENIRAMINE MALEATE
     Dosage: 1 TABLET
     Route: 065
  6. PROPRANOLOL [Concomitant]
     Active Substance: PROPRANOLOL\PROPRANOLOL HYDROCHLORIDE
     Indication: BLOOD PRESSURE
  7. ACTEMRA [Suspect]
     Active Substance: TOCILIZUMAB
     Indication: RHEUMATOID ARTHRITIS
     Route: 042
     Dates: start: 201407
  8. ARAVA [Concomitant]
     Active Substance: LEFLUNOMIDE
     Route: 048
     Dates: end: 20140801

REACTIONS (13)
  - Local swelling [Unknown]
  - Malaise [Recovered/Resolved]
  - Swelling [Unknown]
  - Arthralgia [Recovering/Resolving]
  - Throat tightness [Recovered/Resolved]
  - Lip dry [Unknown]
  - Dyspnoea [Recovered/Resolved]
  - Gingival bleeding [Unknown]
  - Chapped lips [Unknown]
  - Pharyngeal oedema [Unknown]
  - Pyrexia [Unknown]
  - Fatigue [Unknown]
  - Therapeutic response decreased [Recovered/Resolved]

NARRATIVE: CASE EVENT DATE: 20140801
